FAERS Safety Report 4416185-7 (Version None)
Quarter: 2004Q3

REPORT INFORMATION
  Report Type: 
  Country: None (occurrence: None)
  Receive Date: 20040804
  Receipt Date: 20040804
  Transmission Date: 20050211
  Serious: Yes (Hospitalization)
  Sender: FDA-Public Use
  Company Number: None

PATIENT
  Age: 51 Year
  Sex: Female
  Weight: 54.4316 kg

DRUGS (1)
  1. ARGATROBAN [Suspect]
     Dosage: 0.5 MEG/KG/MIN TITRATE TO A PTT
     Dates: start: 20030717, end: 20030718

REACTIONS (1)
  - INTERNATIONAL NORMALISED RATIO INCREASED [None]
